FAERS Safety Report 24033852 (Version 1)
Quarter: 2024Q3

REPORT INFORMATION
  Report Type: Spontaneous
  Country: AT (occurrence: AT)
  Receive Date: 20240701
  Receipt Date: 20240701
  Transmission Date: 20241017
  Serious: No
  Sender: Unknown Manufacturer
  Company Number: AT-MIRUM PHARMACEUTICALS INTERNATIONAL B.V.-AT-MIR-24-00369

PATIENT
  Age: 8 Year
  Sex: Female

DRUGS (2)
  1. LIVMARLI [Suspect]
     Active Substance: MARALIXIBAT CHLORIDE
     Indication: Alagille syndrome
     Dosage: 380 MICROGRAM/KILOGRAM
     Route: 065
     Dates: start: 202205
  2. LIVMARLI [Suspect]
     Active Substance: MARALIXIBAT CHLORIDE
     Dosage: 190 MICROGRAM/KILOGRAM
     Route: 065

REACTIONS (3)
  - Pruritus [Unknown]
  - Transaminases increased [Unknown]
  - Drug ineffective [Unknown]
